FAERS Safety Report 7970388-3 (Version None)
Quarter: 2011Q4

REPORT INFORMATION
  Report Type: 
  Country: None (occurrence: None)
  Receive Date: 20111212
  Receipt Date: 20111128
  Transmission Date: 20120403
  Serious: Yes (Hospitalization)
  Sender: FDA-Public Use
  Company Number: PHHY2011DE105212

PATIENT
  Sex: Male

DRUGS (2)
  1. CLOZAPINE [Suspect]
     Dosage: 62.5 MG, UNK
     Dates: start: 20110818
  2. CLOZAPINE [Suspect]
     Dosage: 25 MG, UNK
     Dates: start: 20110802

REACTIONS (17)
  - PYREXIA [None]
  - COUGH [None]
  - CARDIAC FAILURE [None]
  - DYSPNOEA [None]
  - MYOCARDITIS [None]
  - TACHYCARDIA [None]
  - SEDATION [None]
  - CHEST PAIN [None]
  - ARRHYTHMIA [None]
  - MYOCARDIAL INFARCTION [None]
  - INFLUENZA LIKE ILLNESS [None]
  - PERICARDIAL EFFUSION [None]
  - PALPITATIONS [None]
  - FATIGUE [None]
  - ASTHENIA [None]
  - TROPONIN T INCREASED [None]
  - C-REACTIVE PROTEIN INCREASED [None]
